FAERS Safety Report 4330403-5 (Version None)
Quarter: 2004Q2

REPORT INFORMATION
  Report Type: 
  Country: None (occurrence: None)
  Receive Date: 20040402
  Receipt Date: 20040213
  Transmission Date: 20050107
  Serious: Yes (Congenital Anomaly)
  Sender: FDA-Public Use
  Company Number: 200412203GDDC

PATIENT
  Age: 0 Day
  Sex: Female

DRUGS (1)
  1. CLOMID [Suspect]
     Indication: INFERTILITY
     Dosage: DOSE: 1 DOSE
     Route: 064
     Dates: start: 20030501, end: 20030701

REACTIONS (4)
  - CONGENITAL ANOMALY [None]
  - CONGENITAL VITREOUS ANOMALY [None]
  - DRUG EXPOSURE DURING PREGNANCY [None]
  - MICROPHTHALMOS [None]
